FAERS Safety Report 8825519 (Version 1)
Quarter: 2012Q4

REPORT INFORMATION
  Report Type: 
  Country: US (occurrence: US)
  Receive Date: 20121004
  Receipt Date: 20121004
  Transmission Date: 20130627
  Serious: Yes (Other)
  Sender: FDA-Public Use
  Company Number: US-JNJFOC-20120905048

PATIENT
  Age: 66 Year
  Sex: Male
  Weight: 76.2 kg

DRUGS (11)
  1. XARELTO [Suspect]
     Indication: CEREBROVASCULAR ACCIDENT PROPHYLAXIS
     Dosage: with evening meal
     Route: 048
     Dates: start: 20120830, end: 20120904
  2. XARELTO [Suspect]
     Indication: ATRIAL FLUTTER
     Dosage: with evening meal
     Route: 048
     Dates: start: 20120830, end: 20120904
  3. XARELTO [Suspect]
     Indication: ATRIAL FIBRILLATION
     Dosage: with evening meal
     Route: 048
     Dates: start: 20120830, end: 20120904
  4. APRISO [Concomitant]
     Indication: CROHN^S DISEASE
  5. LISINOPRIL [Concomitant]
     Indication: BLOOD PRESSURE
  6. ATENOLOL [Concomitant]
     Indication: BLOOD PRESSURE
  7. PRAVASTATIN [Concomitant]
     Indication: BLOOD CHOLESTEROL
  8. REMICADE [Concomitant]
     Indication: ANKYLOSING SPONDYLITIS
  9. CITRUCEL [Concomitant]
     Indication: MEDICAL DIET
  10. MAGNESIUM [Concomitant]
     Indication: MUSCLE RELAXANT THERAPY
  11. VITAMIN B-12 [Concomitant]
     Indication: INTESTINAL RESECTION

REACTIONS (2)
  - Blood urine present [Recovered/Resolved]
  - Chromaturia [Recovered/Resolved]
